FAERS Safety Report 7294704-3 (Version None)
Quarter: 2011Q1

REPORT INFORMATION
  Report Type: 
  Country: None (occurrence: None)
  Receive Date: 20110216
  Receipt Date: 20110204
  Transmission Date: 20110831
  Serious: Yes (Other)
  Sender: FDA-Public Use
  Company Number: US-BAYER-2011-011771

PATIENT
  Sex: Female

DRUGS (2)
  1. AVELOX [Suspect]
     Dosage: 400 MG, QD
  2. PARACETAMOL [Suspect]

REACTIONS (3)
  - HYPERSENSITIVITY [None]
  - RASH GENERALISED [None]
  - OEDEMA PERIPHERAL [None]
